FAERS Safety Report 8415618-9 (Version None)
Quarter: 2012Q2

REPORT INFORMATION
  Report Type: 
  Country: None (occurrence: None)
  Receive Date: 20120606
  Receipt Date: 20120528
  Transmission Date: 20120825
  Serious: Yes (Hospitalization)
  Sender: FDA-Public Use
  Company Number: CA-ABBOTT-12P-028-0940473-00

PATIENT
  Sex: Male

DRUGS (4)
  1. APO-PROPRANOLOL [Concomitant]
     Indication: ESSENTIAL TREMOR
     Dates: start: 20100216
  2. CELEBREX [Concomitant]
     Indication: ARTHRITIS
     Dosage: QD, PRN
     Dates: start: 20090801
  3. HUMIRA [Suspect]
     Indication: PSORIASIS
     Route: 058
     Dates: start: 20100129
  4. HUMIRA [Suspect]
     Route: 058
     Dates: start: 20120221

REACTIONS (1)
  - SKIN ULCER [None]
